FAERS Safety Report 10056557 (Version 1)
Quarter: 2014Q2

REPORT INFORMATION
  Report Type: Spontaneous
  Country: US (occurrence: US)
  Receive Date: 20140403
  Receipt Date: 20140403
  Transmission Date: 20141212
  Serious: No
  Sender: FDA-Public Use
  Company Number: US-PFIZER INC-2014090405

PATIENT
  Sex: Male
  Weight: 95.24 kg

DRUGS (2)
  1. ADVIL [Suspect]
     Indication: PAIN
     Dosage: 200 MG, AS NEEDED
     Route: 048
  2. ASPIRIN [Concomitant]
     Dosage: UNK

REACTIONS (3)
  - Dyspepsia [Unknown]
  - Dysgeusia [Unknown]
  - Product taste abnormal [Unknown]
